FAERS Safety Report 6914719-1 (Version None)
Quarter: 2010Q3

REPORT INFORMATION
  Report Type: 
  Country: None (occurrence: None)
  Receive Date: 20100804
  Receipt Date: 20100804
  Transmission Date: 20110219
  Serious: Yes (Hospitalization)
  Sender: FDA-Public Use
  Company Number: None

PATIENT
  Age: 75 Year
  Sex: Male

DRUGS (2)
  1. CLOPIDOGREL [Suspect]
     Dosage: PO
     Route: 048
     Dates: start: 20040331, end: 20090305
  2. ASPIRIN [Suspect]
     Dosage: PO
     Route: 048
     Dates: end: 20090305

REACTIONS (1)
  - GASTRIC ULCER HAEMORRHAGE [None]
